FAERS Safety Report 10080381 (Version 2)
Quarter: 2014Q2

REPORT INFORMATION
  Report Type: Report from Study
  Country: US (occurrence: US)
  Receive Date: 20140415
  Receipt Date: 20140415
  Transmission Date: 20141212
  Serious: Yes (Hospitalization, Other)
  Sender: FDA-Public Use
  Company Number: US-BRISTOL-MYERS SQUIBB COMPANY-19043488

PATIENT
  Age: 13 Year
  Sex: Male
  Weight: 57 kg

DRUGS (10)
  1. DASATINIB [Suspect]
     Indication: ACUTE LYMPHOCYTIC LEUKAEMIA
     Dosage: REDUCED TO 95MG AND 75MG?11JUN-22JUL:75MG?24JUL-24UL,26JUL-07AUG,09AUG-25AUG,27AUG-03SEP:75MG
     Route: 048
     Dates: start: 20130118
  2. IFOSFAMIDE [Suspect]
     Indication: ACUTE LYMPHOCYTIC LEUKAEMIA
     Dosage: 30APR13-01MAY13:1290MG?01MAY13-03MAY13:4580MG
     Route: 042
     Dates: start: 20130430, end: 20130503
  3. DEXAMETHASONE [Suspect]
     Indication: ACUTE LYMPHOCYTIC LEUKAEMIA
     Dosage: 29APR-30APR:21MG?30APR-04MAY:32MG?04MAY-05MAY:11MG
     Route: 048
     Dates: start: 20130429, end: 20130505
  4. METHOTREXATE [Suspect]
     Indication: ACUTE LYMPHOCYTIC LEUKAEMIA
     Dosage: ALSO RECEIVED HIGH DOSE MTX FROM 29APR13-30APR13 (8050 MG) IV
     Route: 037
     Dates: start: 20130429, end: 20130430
  5. METHOTREXATE [Suspect]
     Indication: ACUTE LYMPHOCYTIC LEUKAEMIA
     Route: 037
     Dates: start: 20130429, end: 20130430
  6. CYTARABINE [Suspect]
     Indication: ACUTE LYMPHOCYTIC LEUKAEMIA
     Route: 037
     Dates: start: 20130429, end: 20130430
  7. HYDROCORTISONE [Suspect]
     Indication: ACUTE LYMPHOCYTIC LEUKAEMIA
     Route: 037
     Dates: start: 20130429, end: 20130430
  8. VINCRISTINE [Suspect]
     Indication: ACUTE LYMPHOCYTIC LEUKAEMIA
     Dosage: 30APR13-01MAY13:2MG?04MAY13-05MAY13:2MG
     Route: 042
     Dates: start: 20130430, end: 20130505
  9. DAUNORUBICIN [Suspect]
     Indication: ACUTE LYMPHOCYTIC LEUKAEMIA
     Route: 042
     Dates: start: 20130503, end: 20130504
  10. ASPARAGINASE [Suspect]
     Indication: ACUTE LYMPHOCYTIC LEUKAEMIA
     Route: 030
     Dates: start: 20130504, end: 20130509

REACTIONS (6)
  - Febrile neutropenia [Recovered/Resolved]
  - Leukopenia [Recovered/Resolved]
  - Pyrexia [Recovered/Resolved]
  - Tachycardia [Recovered/Resolved]
  - Abdominal pain [Recovered/Resolved]
  - Anaemia [Recovered/Resolved]
